FAERS Safety Report 10908361 (Version 1)
Quarter: 2015Q1

REPORT INFORMATION
  Report Type: Spontaneous
  Country: ES (occurrence: ES)
  Receive Date: 20150312
  Receipt Date: 20150312
  Transmission Date: 20150721
  Serious: Yes (Other)
  Sender: FDA-Public Use
  Company Number: ES-BAXTER-2015BAX012142

PATIENT
  Sex: Female

DRUGS (1)
  1. KIOVIG [Suspect]
     Active Substance: HUMAN IMMUNOGLOBULIN G
     Indication: IMMUNODEFICIENCY COMMON VARIABLE
     Route: 042

REACTIONS (6)
  - Gastrointestinal disorder [Unknown]
  - Condition aggravated [Unknown]
  - Cytomegalovirus colitis [Unknown]
  - Lymphocytic infiltration [Unknown]
  - Lymphoma [Unknown]
  - Therapy responder [Unknown]
